FAERS Safety Report 15367397 (Version 1)
Quarter: 2018Q3

REPORT INFORMATION
  Report Type: Spontaneous
  Country: CA (occurrence: US)
  Receive Date: 20180902
  Receipt Date: 20180902
  Transmission Date: 20181010
  Serious: Yes (Hospitalization)
  Sender: FDA-Public Use
  Company Number: None

PATIENT
  Age: 67 Year
  Sex: Male
  Weight: 74.84 kg

DRUGS (2)
  1. LINEZOLID, 600 MG [Suspect]
     Active Substance: LINEZOLID
     Indication: STAPHYLOCOCCAL SEPSIS
     Route: 042
  2. LINEZOLID, 600 MG [Suspect]
     Active Substance: LINEZOLID
     Indication: EMPYEMA
     Route: 042

REACTIONS (5)
  - Therapy change [None]
  - Drug interaction [None]
  - Anxiety [None]
  - Dyskinesia [None]
  - Muscle twitching [None]

NARRATIVE: CASE EVENT DATE: 20180201
